FAERS Safety Report 4900141-6 (Version None)
Quarter: 2006Q1

REPORT INFORMATION
  Report Type: 
  Country: None (occurrence: None)
  Receive Date: 20060201
  Receipt Date: 20060119
  Transmission Date: 20060701
  Serious: Yes (Other)
  Sender: FDA-Public Use
  Company Number: 2006010097

PATIENT
  Age: 78 Year
  Sex: Female
  Weight: 68.9467 kg

DRUGS (2)
  1. LIPITOR [Suspect]
     Indication: BLOOD CHOLESTEROL INCREASED
     Dosage: 10 MG (10 MG, 1 IN 1 D)
  2. LISINOPRIL [Concomitant]

REACTIONS (9)
  - ABASIA [None]
  - BLOOD PRESSURE SYSTOLIC INCREASED [None]
  - DEPRESSED LEVEL OF CONSCIOUSNESS [None]
  - MUSCLE SPASMS [None]
  - MYALGIA [None]
  - PAIN [None]
  - PARALYSIS [None]
  - TENDERNESS [None]
  - THROAT IRRITATION [None]
